FAERS Safety Report 6369534-7 (Version None)
Quarter: 2009Q3

REPORT INFORMATION
  Report Type: 
  Country: None (occurrence: None)
  Receive Date: 20090923
  Receipt Date: 20090918
  Transmission Date: 20100115
  Serious: Yes (Other)
  Sender: FDA-Public Use
  Company Number: US-JNJFOC-20090906064

PATIENT
  Sex: Male

DRUGS (3)
  1. IMODIUM A-D [Suspect]
     Route: 048
     Dates: start: 20090918
  2. IMODIUM A-D [Suspect]
     Indication: DIARRHOEA
     Route: 048
     Dates: start: 20090918
  3. HEART MEDICATION (UNKNOWN) [Concomitant]

REACTIONS (5)
  - DRUG INEFFECTIVE [None]
  - DYSPNOEA [None]
  - EXPIRED DRUG ADMINISTERED [None]
  - HEART RATE INCREASED [None]
  - INAPPROPRIATE SCHEDULE OF DRUG ADMINISTRATION [None]
